FAERS Safety Report 4563212-2 (Version None)
Quarter: 2005Q1

REPORT INFORMATION
  Report Type: 
  Country: None (occurrence: None)
  Receive Date: 20050118
  Receipt Date: 20040714
  Transmission Date: 20050727
  Serious: Yes (Other)
  Sender: FDA-Public Use
  Company Number: HQWYE245019JUL04

PATIENT
  Age: 58 Year
  Sex: Female

DRUGS (5)
  1. PREMPRO (CONJUGATED ESTROGENS/MEDROXYPROGRESTERONE ACETATE, TABLET, UN [Suspect]
     Indication: MENOPAUSAL SYMPTOMS
  2. ESTRACE [Suspect]
     Indication: MENOPAUSAL SYMPTOMS
  3. ESTRATEST [Suspect]
     Indication: MENOPAUSAL SYMPTOMS
  4. MEDROXYPROGESTERONE [Suspect]
     Indication: MENOPAUSAL SYMPTOMS
  5. PREMARIN [Suspect]
     Indication: MENOPAUSAL SYMPTOMS

REACTIONS (1)
  - BREAST CANCER [None]
